FAERS Safety Report 24278474 (Version 1)
Quarter: 2024Q3

REPORT INFORMATION
  Report Type: Spontaneous
  Country: CN (occurrence: CN)
  Receive Date: 20240903
  Receipt Date: 20240903
  Transmission Date: 20241016
  Serious: Yes (Other)
  Sender: MERCK
  Company Number: CN-009507513-2408CHN009676

PATIENT
  Age: 73 Year
  Sex: Female
  Weight: 54 kg

DRUGS (3)
  1. KEYTRUDA [Suspect]
     Active Substance: PEMBROLIZUMAB
     Indication: Oesophageal carcinoma
     Dosage: 200 MG, Q3W
     Route: 041
     Dates: start: 20240809, end: 20240809
  2. CARBOPLATIN [Suspect]
     Active Substance: CARBOPLATIN
     Indication: Oesophageal carcinoma
     Dosage: 400 MG, Q3W
     Route: 041
     Dates: start: 20240809, end: 20240809
  3. PACLITAXEL [Suspect]
     Active Substance: PACLITAXEL
     Indication: Oesophageal carcinoma
     Dosage: 390 MG, Q3W
     Route: 041
     Dates: start: 20240809, end: 20240809

REACTIONS (6)
  - Myelosuppression [Recovering/Resolving]
  - Hypoaesthesia [Recovering/Resolving]
  - Electric shock sensation [Unknown]
  - Poor quality sleep [Unknown]
  - Decreased appetite [Unknown]
  - Product use issue [Unknown]

NARRATIVE: CASE EVENT DATE: 20240809
